FAERS Safety Report 16032087 (Version 2)
Quarter: 2019Q1

REPORT INFORMATION
  Report Type: Spontaneous
  Country: NL (occurrence: NL)
  Receive Date: 20190304
  Receipt Date: 20190321
  Transmission Date: 20190418
  Serious: Yes (Death, Hospitalization)
  Sender: FDA-Public Use
  Company Number: PHHY2019NL048145

PATIENT
  Age: 76 Year
  Sex: Female

DRUGS (2)
  1. AMOXICILLIN. [Suspect]
     Active Substance: AMOXICILLIN
     Indication: EVIDENCE BASED TREATMENT
     Route: 042
  2. PREDNISONE. [Suspect]
     Active Substance: PREDNISONE
     Indication: POLYMYALGIA RHEUMATICA
     Route: 065

REACTIONS (12)
  - Sepsis [Fatal]
  - CNS ventriculitis [Fatal]
  - Facial paralysis [Fatal]
  - Vomiting [Fatal]
  - Brain abscess [Fatal]
  - Listeriosis [Fatal]
  - Meningoencephalitis bacterial [Fatal]
  - Headache [Fatal]
  - Disorientation [Fatal]
  - Altered state of consciousness [Fatal]
  - Musculoskeletal stiffness [Fatal]
  - Respiratory failure [Fatal]

NARRATIVE: CASE EVENT DATE: 2009
